FAERS Safety Report 11583409 (Version 1)
Quarter: 2015Q4

REPORT INFORMATION
  Report Type: Other
  Country: TW (occurrence: TW)
  Receive Date: 20151001
  Receipt Date: 20151001
  Transmission Date: 20160304
  Serious: Yes (Other)
  Sender: FDA-Public Use
  Company Number: TW-LUPIN PHARMACEUTICALS INC.-2015-03012

PATIENT
  Age: 84 Year
  Sex: Male

DRUGS (2)
  1. CEFTRIAXONE. [Suspect]
     Active Substance: CEFTRIAXONE
     Indication: KLEBSIELLA INFECTION
     Route: 042
  2. CEFUROXIME. [Suspect]
     Active Substance: CEFUROXIME
     Indication: KLEBSIELLA INFECTION
     Route: 048

REACTIONS (1)
  - Multiple-drug resistance [Unknown]
